FAERS Safety Report 8780531 (Version 1)
Quarter: 2012Q4

REPORT INFORMATION
  Report Type: 
  Country: US (occurrence: US)
  Receive Date: 20120913
  Receipt Date: 20120913
  Transmission Date: 20130627
  Serious: No
  Sender: FDA-Public Use
  Company Number: US-PFIZER INC-2012223144

PATIENT
  Age: 55 Year
  Sex: Male

DRUGS (6)
  1. VIAGRA [Suspect]
     Indication: ERECTILE DYSFUNCTION
     Dosage: 100 mg, as needed
     Route: 048
  2. WELLBUTRIN XL [Concomitant]
     Dosage: 300 mg, UNK
  3. LEVOTHYROXINE [Concomitant]
     Dosage: 112 ug, UNK
  4. ATENOLOL [Concomitant]
     Indication: HYPERTENSION
     Dosage: 100 mg, UNK
  5. TRAZODONE [Concomitant]
     Dosage: 50 mg, UNK
  6. VYVANSE [Concomitant]
     Dosage: 70 mg, UNK

REACTIONS (1)
  - Drug ineffective [Unknown]
